FAERS Safety Report 20157255 (Version 4)
Quarter: 2022Q1

REPORT INFORMATION
  Report Type: Spontaneous
  Country: JP (occurrence: JP)
  Receive Date: 20211207
  Receipt Date: 20220321
  Transmission Date: 20220423
  Serious: Yes (Other)
  Sender: FDA-Public Use
  Company Number: JP-PFIZER INC-202101663479

PATIENT
  Age: 73 Year
  Sex: Female
  Weight: 48.2 kg

DRUGS (25)
  1. BESPONSA [Suspect]
     Active Substance: INOTUZUMAB OZOGAMICIN
     Indication: Acute lymphocytic leukaemia recurrent
     Dosage: 0.7 MG/M2, 1X/DAY, DOSE1 OF CYCLE1
     Route: 041
     Dates: start: 20210803, end: 20210803
  2. BESPONSA [Suspect]
     Active Substance: INOTUZUMAB OZOGAMICIN
     Indication: Acute lymphocytic leukaemia refractory
     Dosage: 0.5 MG/M2, 1X/DAY, DOSE2 OF CYCLE1
     Route: 041
     Dates: start: 20210810, end: 20210810
  3. BESPONSA [Suspect]
     Active Substance: INOTUZUMAB OZOGAMICIN
     Dosage: 0.5 MG/M2, 1X/DAY, DOSE3 OF CYCLE1
     Route: 041
     Dates: start: 20210817, end: 20210817
  4. BESPONSA [Suspect]
     Active Substance: INOTUZUMAB OZOGAMICIN
     Dosage: 0.7 MG/M2, 1X/DAY, DOSE1 OF CYCLE2
     Route: 041
     Dates: start: 20210831, end: 20210831
  5. BESPONSA [Suspect]
     Active Substance: INOTUZUMAB OZOGAMICIN
     Dosage: 0.5 MG/M2, 1X/DAY, DOSE2 OF CYCLE2
     Route: 041
     Dates: start: 20210907, end: 20210907
  6. BESPONSA [Suspect]
     Active Substance: INOTUZUMAB OZOGAMICIN
     Dosage: 0.5 MG/M2, 1X/DAY, DOSE3 OF CYCLE2
     Route: 041
     Dates: start: 20210914, end: 20210914
  7. BESPONSA [Suspect]
     Active Substance: INOTUZUMAB OZOGAMICIN
     Dosage: 0.5 MG/M2, 1X/DAY, DOSE1 OF CYCLE3
     Route: 041
     Dates: start: 20210928, end: 20210928
  8. BESPONSA [Suspect]
     Active Substance: INOTUZUMAB OZOGAMICIN
     Dosage: 0.5 MG/M2, 1X/DAY, DOSE2 OF CYCLE3
     Route: 041
     Dates: start: 20211005, end: 20211005
  9. BESPONSA [Suspect]
     Active Substance: INOTUZUMAB OZOGAMICIN
     Dosage: 0.5 MG/M2, 1X/DAY, DOSE3 OF CYCLE3
     Route: 041
     Dates: start: 20211012, end: 20211012
  10. BESPONSA [Suspect]
     Active Substance: INOTUZUMAB OZOGAMICIN
     Dosage: 0.5 MG/M2, 1X/DAY, DOSE1 FO CYCLE4
     Route: 041
     Dates: start: 20211026, end: 20211026
  11. BESPONSA [Suspect]
     Active Substance: INOTUZUMAB OZOGAMICIN
     Dosage: 0.5 MG/M2, 1X/DAY, DOSE2 OF CYCLE4
     Route: 041
     Dates: start: 20211112, end: 20211112
  12. BESPONSA [Suspect]
     Active Substance: INOTUZUMAB OZOGAMICIN
     Dosage: 0.5 MG/M2, 1X/DAY, DOSE1 OF CYCLE5
     Route: 041
     Dates: start: 20211130, end: 20211130
  13. BESPONSA [Suspect]
     Active Substance: INOTUZUMAB OZOGAMICIN
     Dosage: 0.5 MG/M2, 1X/DAY, DOSE2 OF CYCLE5
     Route: 041
     Dates: start: 20211207, end: 20211207
  14. BESPONSA [Suspect]
     Active Substance: INOTUZUMAB OZOGAMICIN
     Dosage: 0.5 MG/M2, 1X/DAY, DOSE3 OF CYCLE5
     Route: 041
     Dates: start: 20211214, end: 20211214
  15. BESPONSA [Suspect]
     Active Substance: INOTUZUMAB OZOGAMICIN
     Dosage: 0.5 MG/M2, 1X/DAY, DOSE1 OF CYCLE5
     Route: 041
     Dates: start: 20211228, end: 20211228
  16. BESPONSA [Suspect]
     Active Substance: INOTUZUMAB OZOGAMICIN
     Dosage: 0.5 MG/M2, 1X/DAY, DOSE2 OF CYCLE5
     Route: 041
     Dates: start: 20220104, end: 20220104
  17. BESPONSA [Suspect]
     Active Substance: INOTUZUMAB OZOGAMICIN
     Dosage: 0.5 MG/M2, 1X/DAY, DOSE3 OF CYCLE6
     Route: 041
     Dates: start: 20220111, end: 20220111
  18. MEROPENEM [Concomitant]
     Active Substance: MEROPENEM
     Indication: Pyrexia
     Dosage: 1 G, 3X/DAY
     Route: 041
     Dates: start: 20210728, end: 20210803
  19. PRO-BANTHINE [Concomitant]
     Active Substance: PROPANTHELINE BROMIDE
     Indication: Colitis ulcerative
     Dosage: 15 MG, 1X/DAY
     Route: 048
  20. RABEPRAZOLE SODIUM [Concomitant]
     Active Substance: RABEPRAZOLE SODIUM
     Indication: Prophylaxis
     Dosage: 10 MG, 1X/DAY
     Route: 048
     Dates: start: 20210621
  21. ACYCLOVIR [Concomitant]
     Active Substance: ACYCLOVIR
     Indication: Prophylaxis
     Dosage: 200 MG, 2X/DAY
     Route: 048
     Dates: start: 20210624
  22. SULFAMETHOXAZOLE\TRIMETHOPRIM [Concomitant]
     Active Substance: SULFAMETHOXAZOLE\TRIMETHOPRIM
     Indication: Prophylaxis
     Dosage: UNK UNK, 1X/DAY
     Route: 048
     Dates: start: 20210624
  23. METHYLCOBALAMIN [Concomitant]
     Active Substance: METHYLCOBALAMIN
     Indication: Prophylaxis
     Dosage: 500 UG, 3X/DAY
     Route: 048
     Dates: start: 20210701
  24. AMLODIPINE [Concomitant]
     Active Substance: AMLODIPINE BESYLATE
     Indication: Hypertension
     Dosage: 2.5 MG, 1X/DAY
     Route: 048
  25. FLUCONAZOLE [Concomitant]
     Active Substance: FLUCONAZOLE
     Indication: Neutrophil count decreased
     Dosage: 100 MG, 1X/DAY
     Route: 048
     Dates: start: 20210721

REACTIONS (3)
  - Neutrophil count decreased [Recovered/Resolved]
  - Myelosuppression [Unknown]
  - Thrombocytopenia [Not Recovered/Not Resolved]

NARRATIVE: CASE EVENT DATE: 20210906
